FAERS Safety Report 19039422 (Version 1)
Quarter: 2021Q1

REPORT INFORMATION
  Report Type: Spontaneous
  Country: US (occurrence: US)
  Receive Date: 20210322
  Receipt Date: 20210322
  Transmission Date: 20210420
  Serious: Yes (Hospitalization)
  Sender: FDA-Public Use
  Company Number: US-AMNEAL PHARMACEUTICALS-2021-AMRX-00972

PATIENT
  Age: 29 Year
  Sex: Male

DRUGS (7)
  1. CREATINE [Suspect]
     Active Substance: CREATINE
     Indication: SUPPLEMENTATION THERAPY
     Dosage: UNK
     Route: 065
  2. METHITEST [Suspect]
     Active Substance: METHYLTESTOSTERONE
     Indication: STEROID THERAPY
     Dosage: UNK
     Route: 065
  3. LINOLEIC ACID [Suspect]
     Active Substance: LINOLEIC ACID
     Indication: SUPPLEMENTATION THERAPY
     Dosage: UNK
     Route: 065
  4. GARCINIA CAMBOGIA [GARCINIA GUMMI?GUTTA] [Suspect]
     Active Substance: DIETARY SUPPLEMENT
     Indication: SUPPLEMENTATION THERAPY
     Dosage: UNK
     Route: 065
  5. L?CARNITINE [LEVOCARNITINE] [Suspect]
     Active Substance: LEVOCARNITINE
     Indication: SUPPLEMENTATION THERAPY
     Dosage: UNK
     Route: 065
  6. YOHIMBINE [Suspect]
     Active Substance: YOHIMBINE
     Indication: SUPPLEMENTATION THERAPY
     Dosage: UNK
     Route: 065
  7. CAFFEINE. [Suspect]
     Active Substance: CAFFEINE
     Indication: SUPPLEMENTATION THERAPY
     Dosage: UNK
     Route: 065

REACTIONS (4)
  - Thrombotic microangiopathy [Not Recovered/Not Resolved]
  - Hypertension [Recovered/Resolved]
  - Tubulointerstitial nephritis [Not Recovered/Not Resolved]
  - Pulmonary oedema [Recovered/Resolved]
